FAERS Safety Report 6676770-9 (Version None)
Quarter: 2010Q2

REPORT INFORMATION
  Report Type: 
  Country: None (occurrence: None)
  Receive Date: 20100412
  Receipt Date: 20100401
  Transmission Date: 20101027
  Serious: Yes (Other)
  Sender: FDA-Public Use
  Company Number: RU-ROCHE-694683

PATIENT
  Sex: Male

DRUGS (4)
  1. PEGASYS [Suspect]
     Indication: HEPATITIS C
     Dosage: DOSE: 180 MKG, 48 WEEKS EACH COURSE, DRUG STOPPED IN 2006
     Route: 058
     Dates: start: 20060101
  2. PEGASYS [Suspect]
     Dosage: 48 WEEKS EACH COURSE, DOSE: 180 MKG
     Route: 058
     Dates: start: 20090101
  3. RIBAVIRIN [Suspect]
     Indication: HEPATITIS C
     Dosage: 48 WEEKS EACH COURSE, STOPPED IN 2006
     Route: 048
     Dates: start: 20060101
  4. RIBAVIRIN [Suspect]
     Dosage: 48 WEEKS EACH COURSE
     Route: 048
     Dates: start: 20090101

REACTIONS (2)
  - HEPATITIS C [None]
  - VIRAL LOAD INCREASED [None]
